FAERS Safety Report 13624699 (Version 7)
Quarter: 2019Q4

REPORT INFORMATION
  Report Type: Spontaneous
  Country: US (occurrence: US)
  Receive Date: 20170608
  Receipt Date: 20191108
  Transmission Date: 20200122
  Serious: Yes (Hospitalization)
  Sender: FDA-Public Use
  Company Number: US-PFIZER INC-2017249265

PATIENT
  Age: 73 Year
  Sex: Female
  Weight: 85 kg

DRUGS (16)
  1. IBRANCE [Suspect]
     Active Substance: PALBOCICLIB
     Dosage: 75 MG
     Dates: end: 20191001
  2. FASLODEX [Concomitant]
     Active Substance: FULVESTRANT
     Indication: BREAST CANCER STAGE IV
     Dosage: UNK
     Dates: start: 201606
  3. COLACE [Concomitant]
     Active Substance: DOCUSATE SODIUM
     Dosage: UNK
  4. XGEVA [Concomitant]
     Active Substance: DENOSUMAB
     Indication: BREAST CANCER STAGE IV
     Dosage: UNK
     Dates: start: 201501
  5. IBRANCE [Suspect]
     Active Substance: PALBOCICLIB
     Dosage: 100 MG, CYCLIC (ONCE A DAY FOR 21 DAYS)
     Route: 048
  6. IBRANCE [Suspect]
     Active Substance: PALBOCICLIB
     Dosage: 100 MG
  7. ACIDOPHILUS [Concomitant]
     Active Substance: LACTOBACILLUS ACIDOPHILUS
     Dosage: UNK
  8. GLUCOSAMINE SULFATE COMPLEX [Concomitant]
     Dosage: UNK
  9. ENSURE ACTIVE HIGH PROTEIN [Concomitant]
     Dosage: UNK
  10. IBRANCE [Suspect]
     Active Substance: PALBOCICLIB
     Dosage: 100 MG, CYCLIC, (DAILY FOR 21 DAYS AND 7 DAYS OFF)
     Route: 048
     Dates: start: 201811
  11. IBRANCE [Suspect]
     Active Substance: PALBOCICLIB
     Dosage: 150 MG
     Dates: start: 201706
  12. CALCIUM CARBONATE. [Concomitant]
     Active Substance: CALCIUM CARBONATE
     Dosage: UNK
  13. IBRANCE [Suspect]
     Active Substance: PALBOCICLIB
     Indication: BREAST CANCER STAGE IV
     Dosage: 100 MG, CYCLIC (DAILY FOR 21 DAYS AND 7 DAYS OFF)
     Route: 048
     Dates: start: 201606, end: 20180809
  14. ALPRAZOLAM. [Concomitant]
     Active Substance: ALPRAZOLAM
     Dosage: UNK
  15. IBUPROFEN. [Concomitant]
     Active Substance: IBUPROFEN
     Dosage: UNK
  16. LUTEIN [Concomitant]
     Active Substance: LUTEIN
     Dosage: UNK

REACTIONS (30)
  - Eye swelling [Unknown]
  - White blood cell count decreased [Unknown]
  - Red blood cell count decreased [Unknown]
  - Sensation of foreign body [Recovered/Resolved]
  - Pleurisy [Unknown]
  - Dry mouth [Unknown]
  - Cellulitis [Recovered/Resolved]
  - Stomatitis [Not Recovered/Not Resolved]
  - Fall [Unknown]
  - Dysphagia [Unknown]
  - Malaise [Unknown]
  - Limb injury [Unknown]
  - Pyrexia [Recovered/Resolved]
  - Neoplasm progression [Unknown]
  - Back pain [Recovering/Resolving]
  - Impaired healing [Unknown]
  - Limb discomfort [Recovered/Resolved]
  - Peripheral swelling [Recovered/Resolved]
  - Fatigue [Unknown]
  - Chest pain [Recovering/Resolving]
  - Staphylococcal infection [Recovered/Resolved]
  - Peripheral swelling [Recovered/Resolved]
  - Oropharyngeal pain [Recovered/Resolved]
  - Nausea [Unknown]
  - Decreased appetite [Unknown]
  - Conjunctivitis [Unknown]
  - Insomnia [Unknown]
  - Erythema [Recovered/Resolved]
  - Full blood count decreased [Not Recovered/Not Resolved]
  - Ocular hyperaemia [Unknown]

NARRATIVE: CASE EVENT DATE: 20170603
